FAERS Safety Report 5812348-4 (Version None)
Quarter: 2008Q3

REPORT INFORMATION
  Report Type: 
  Country: None (occurrence: None)
  Receive Date: 20080714
  Receipt Date: 20080701
  Transmission Date: 20090109
  Serious: Yes (Disabling, Other)
  Sender: FDA-Public Use
  Company Number: ADE2008-0241

PATIENT
  Age: 51 Year
  Sex: Male

DRUGS (3)
  1. ATENOLOL [Suspect]
     Indication: HYPERTENSION
  2. SILDENAFIL CITRATE [Suspect]
  3. PROPRANOLOL [Suspect]
     Indication: MIGRAINE

REACTIONS (7)
  - BLOOD PRESSURE DECREASED [None]
  - HAEMORRHAGIC TUMOUR NECROSIS [None]
  - HYPOPITUITARISM [None]
  - IIIRD NERVE PARALYSIS [None]
  - PITUITARY HAEMORRHAGE [None]
  - PITUITARY INFARCTION [None]
  - PITUITARY TUMOUR BENIGN [None]
